FAERS Safety Report 4388656-3 (Version None)
Quarter: 2004Q2

REPORT INFORMATION
  Report Type: 
  Country: None (occurrence: None)
  Receive Date: 20040624
  Receipt Date: 20040610
  Transmission Date: 20050107
  Serious: Yes (Hospitalization, Other)
  Sender: FDA-Public Use
  Company Number: 237556

PATIENT
  Sex: Male
  Weight: 4.7 kg

DRUGS (11)
  1. ACTRAPID PENFILL HM (GE) 3ML (ACTRAPID PENFILL HM (GE) 3ML) [Suspect]
     Indication: DIABETES MELLITUS INSULIN-DEPENDENT
     Dosage: 114 IU, QD, INTRAUTERINE
     Route: 015
     Dates: start: 20031115
  2. INSULATARD HM PENFILL (INSULIN HUMAN) SUSPENSION FOR INJECTION [Concomitant]
  3. MATERNA 1.60 (DOCUSATE SODIUM, MINERALS NOS, VITAMINS NOS) [Concomitant]
  4. LIDOCAIN ^EGIS^ (LIDOCAINE HYDROCHLORIDE) [Concomitant]
  5. MARCAINE [Concomitant]
  6. FRAXIPARINE/FRA/(HEPARIN-FRACTION, CALCIUM SALT) [Concomitant]
  7. FENTANYL [Concomitant]
  8. DEGAN (METOCLOPRAMIDE HYDROCHLORIDE) [Concomitant]
  9. RINGER (CALCIUM CHLORIDE DIHYDRATE, PTOASSIUM CHLORIDE, SODIUM CHLORID [Concomitant]
  10. CALCIUMGLUCONIUM [Concomitant]
  11. FERROSPARTIN [Concomitant]

REACTIONS (3)
  - APGAR SCORE LOW [None]
  - DRUG EXPOSURE DURING PREGNANCY [None]
  - HYPOGLYCAEMIA NEONATAL [None]
